APPROVED DRUG PRODUCT: NORCURON
Active Ingredient: VECURONIUM BROMIDE
Strength: 20MG/VIAL **Federal Register determination that product was not discontinued or withdrawn for safety or effectiveness reasons**
Dosage Form/Route: INJECTABLE;INJECTION
Application: N018776 | Product #003
Applicant: ORGANON USA INC
Approved: Jan 3, 1992 | RLD: Yes | RS: No | Type: DISCN